FAERS Safety Report 17069972 (Version 3)
Quarter: 2020Q1

REPORT INFORMATION
  Report Type: Spontaneous
  Country: AU (occurrence: AU)
  Receive Date: 20191125
  Receipt Date: 20200120
  Transmission Date: 20200409
  Serious: Yes (Other)
  Sender: FDA-Public Use
  Company Number: AU-ROCHE-2475658

PATIENT
  Sex: Female
  Weight: 84 kg

DRUGS (16)
  1. DOXORUBICIN [Suspect]
     Active Substance: DOXORUBICIN
     Indication: NON-HODGKIN^S LYMPHOMA
     Route: 065
  2. CYCLOPHOSPHAMIDE. [Suspect]
     Active Substance: CYCLOPHOSPHAMIDE
     Indication: B-CELL LYMPHOMA
     Dosage: X 8
     Route: 065
     Dates: start: 2001
  3. BENDAMUSTINE [Suspect]
     Active Substance: BENDAMUSTINE
     Indication: B-CELL LYMPHOMA
     Dosage: X 6
     Route: 065
     Dates: start: 201804, end: 201808
  4. CYTARABINE. [Concomitant]
     Active Substance: CYTARABINE
     Indication: B-CELL LYMPHOMA
     Dosage: 6-CYCLES
     Route: 065
     Dates: start: 20190514
  5. CYCLOPHOSPHAMIDE. [Suspect]
     Active Substance: CYCLOPHOSPHAMIDE
     Dosage: X 6
     Route: 065
     Dates: start: 201705
  6. PREDNISONE. [Suspect]
     Active Substance: PREDNISONE
     Indication: B-CELL LYMPHOMA
     Dosage: X 8
     Route: 065
     Dates: start: 2001
  7. OXALIPLATIN. [Suspect]
     Active Substance: OXALIPLATIN
     Indication: NON-HODGKIN^S LYMPHOMA
     Route: 065
  8. RITUXIMAB. [Suspect]
     Active Substance: RITUXIMAB
     Dosage: X 6
     Route: 065
     Dates: start: 201705
  9. VINCRISTINE [Suspect]
     Active Substance: VINCRISTINE
     Dosage: X 6
     Route: 065
     Dates: start: 201705
  10. PREDNISONE. [Suspect]
     Active Substance: PREDNISONE
     Dosage: X 6
     Route: 065
     Dates: start: 201705
  11. GEMCITABINE. [Suspect]
     Active Substance: GEMCITABINE
     Indication: NON-HODGKIN^S LYMPHOMA
     Route: 065
  12. IDELALISIB [Suspect]
     Active Substance: IDELALISIB
     Indication: B-CELL LYMPHOMA
     Route: 065
     Dates: start: 201812, end: 201904
  13. DEXAMETHASONE. [Concomitant]
     Active Substance: DEXAMETHASONE
     Indication: B-CELL LYMPHOMA
     Dosage: 6-CYCLES
     Route: 065
     Dates: start: 20190514
  14. RITUXIMAB. [Suspect]
     Active Substance: RITUXIMAB
     Indication: B-CELL LYMPHOMA
     Dosage: X 4
     Route: 065
     Dates: start: 2013
  15. VINCRISTINE [Suspect]
     Active Substance: VINCRISTINE
     Indication: B-CELL LYMPHOMA
     Dosage: X 8
     Route: 065
     Dates: start: 2001
  16. CISPLATIN. [Concomitant]
     Active Substance: CISPLATIN
     Indication: B-CELL LYMPHOMA
     Dosage: 6-CYCLES
     Route: 065
     Dates: start: 20190514

REACTIONS (5)
  - Bone disorder [Unknown]
  - Cytopenia [Unknown]
  - Myelodysplastic syndrome [Unknown]
  - Treatment failure [Unknown]
  - Drug ineffective [Unknown]
